FAERS Safety Report 25452826 (Version 2)
Quarter: 2025Q2

REPORT INFORMATION
  Report Type: Spontaneous
  Country: DE (occurrence: DE)
  Receive Date: 20250618
  Receipt Date: 20250630
  Transmission Date: 20250716
  Serious: Yes (Hospitalization)
  Sender: EISAI
  Company Number: DE-Eisai-EC-2025-191038

PATIENT
  Age: 69 Year
  Sex: Male
  Weight: 91 kg

DRUGS (3)
  1. LENVATINIB [Suspect]
     Active Substance: LENVATINIB
     Indication: Metastatic renal cell carcinoma
     Dates: start: 202412, end: 20250517
  2. PEMBROLIZUMAB [Interacting]
     Active Substance: PEMBROLIZUMAB
     Indication: Metastatic renal cell carcinoma
     Dates: start: 20241219, end: 20250430
  3. HYDROCORTISONE [Interacting]
     Active Substance: HYDROCORTISONE
     Indication: Adrenal insufficiency
     Dates: start: 202406

REACTIONS (6)
  - Diarrhoea [Recovering/Resolving]
  - Hyperglycaemia [Recovering/Resolving]
  - Dehydration [Recovering/Resolving]
  - Hypothermia [Recovering/Resolving]
  - Fatigue [Recovering/Resolving]
  - Drug interaction [Recovering/Resolving]

NARRATIVE: CASE EVENT DATE: 20250517
